FAERS Safety Report 22225371 (Version 1)
Quarter: 2023Q2

REPORT INFORMATION
  Report Type: Spontaneous
  Country: US (occurrence: US)
  Receive Date: 20230418
  Receipt Date: 20230418
  Transmission Date: 20230721
  Serious: Yes (Other)
  Sender: FDA-Public Use
  Company Number: US-JNJFOC-20230421518

PATIENT
  Age: 58 Year
  Sex: Male

DRUGS (1)
  1. BALVERSA [Suspect]
     Active Substance: ERDAFITINIB
     Indication: Transitional cell carcinoma
     Route: 065

REACTIONS (2)
  - Maculopathy [Recovering/Resolving]
  - Weight decreased [Unknown]
